FAERS Safety Report 4965097-9 (Version None)
Quarter: 2006Q1

REPORT INFORMATION
  Report Type: 
  Country: None (occurrence: None)
  Receive Date: 20060201
  Receipt Date: 20051004
  Transmission Date: 20060701
  Serious: No
  Sender: FDA-Public Use
  Company Number: 2005PV002773

PATIENT
  Age: 45 Year
  Sex: Female
  Weight: 113.3993 kg

DRUGS (7)
  1. BYETTA [Suspect]
     Indication: DIABETES MELLITUS NON-INSULIN-DEPENDENT
     Dosage: 5 MG BID SC
     Route: 058
     Dates: start: 20050919, end: 20050929
  2. LANTUS [Concomitant]
  3. NOVOLOG [Concomitant]
  4. METFORMIN [Concomitant]
  5. AVAPRO [Concomitant]
  6. LASIX [Concomitant]
  7. LANTUS [Concomitant]

REACTIONS (2)
  - INFLUENZA [None]
  - NAUSEA [None]
